FAERS Safety Report 7774835-1 (Version None)
Quarter: 2011Q3

REPORT INFORMATION
  Report Type: 
  Country: None (occurrence: None)
  Receive Date: 20110923
  Receipt Date: 20110914
  Transmission Date: 20111222
  Serious: Yes (Hospitalization)
  Sender: FDA-Public Use
  Company Number: US-JNJFOC-20110906753

PATIENT
  Sex: Female
  Weight: 25.86 kg

DRUGS (8)
  1. PRILOSEC [Concomitant]
  2. PREDNISONE [Concomitant]
  3. REMICADE [Suspect]
     Route: 042
     Dates: start: 20110106
  4. REMICADE [Suspect]
     Indication: CROHN'S DISEASE
     Route: 042
     Dates: start: 20110825
  5. REMICADE [Suspect]
     Route: 042
     Dates: start: 20110908
  6. CALCIUM WITH VITAMIN D [Concomitant]
  7. M.V.I. [Concomitant]
  8. FERROUS SULFATE TAB [Concomitant]

REACTIONS (1)
  - ABDOMINAL ABSCESS [None]
